FAERS Safety Report 7529192-2 (Version None)
Quarter: 2011Q2

REPORT INFORMATION
  Report Type: 
  Country: None (occurrence: None)
  Receive Date: 20110607
  Receipt Date: 20110601
  Transmission Date: 20111010
  Serious: Yes (Hospitalization)
  Sender: FDA-Public Use
  Company Number: DE-ROCHE-779622

PATIENT
  Sex: Male
  Weight: 134 kg

DRUGS (13)
  1. CAPECITABINE [Suspect]
     Indication: RECTAL CANCER
     Route: 048
     Dates: start: 20110221
  2. CIPRO [Concomitant]
     Indication: INFECTION
     Route: 042
     Dates: start: 20110523, end: 20110525
  3. PANTOPRAZOLE [Concomitant]
     Indication: PROPHYLAXIS
     Route: 048
     Dates: start: 20110518, end: 20110521
  4. PANTOPRAZOLE [Concomitant]
     Route: 042
     Dates: start: 20110522
  5. ATACAND [Concomitant]
     Indication: HYPERTENSION
     Route: 048
  6. PANTOPRAZOLE [Concomitant]
     Route: 042
     Dates: start: 20110512, end: 20110517
  7. NOVALGIN [Concomitant]
     Indication: ANALGESIC THERAPY
     Route: 048
     Dates: start: 20110518, end: 20110521
  8. OXALIPLATIN [Suspect]
     Indication: RECTAL CANCER
     Route: 042
     Dates: start: 20110221
  9. SCOPOLAMINE [Concomitant]
     Indication: ANALGESIC THERAPY
     Route: 042
     Dates: start: 20110518, end: 20110522
  10. NOVALGIN [Concomitant]
     Route: 042
     Dates: start: 20110512, end: 20110517
  11. METOPROLOL SUCCINATE [Concomitant]
     Route: 048
  12. EMBOLEX [Concomitant]
     Indication: THROMBOSIS PROPHYLAXIS
     Route: 058
     Dates: start: 20110512
  13. FLUVASTATIN [Concomitant]
     Route: 048

REACTIONS (2)
  - PYREXIA [None]
  - FAILURE TO ANASTOMOSE [None]
